FAERS Safety Report 4677795-5 (Version None)
Quarter: 2005Q2

REPORT INFORMATION
  Report Type: 
  Country: None (occurrence: None)
  Receive Date: 20050531
  Receipt Date: 20050516
  Transmission Date: 20051028
  Serious: Yes (Death, Hospitalization)
  Sender: FDA-Public Use
  Company Number: FR-JNJFOC-20050404045

PATIENT
  Sex: Male
  Weight: 57 kg

DRUGS (10)
  1. RISPERDAL CONSTA [Suspect]
     Indication: AUTISM
     Route: 030
  2. RISPERDAL [Suspect]
     Indication: AUTISM
     Route: 049
  3. TEGRETOL [Suspect]
  4. TRANXENE [Concomitant]
     Indication: ANXIETY
  5. MAGNE-B6 [Concomitant]
  6. MAGNE-B6 [Concomitant]
     Indication: MAGNESIUM DEFICIENCY
  7. MODANE [Concomitant]
  8. MODANE [Concomitant]
     Indication: CONSTIPATION
  9. DEBRIDAT [Concomitant]
     Indication: CONSTIPATION
  10. LANSOYL [Concomitant]
     Indication: CONSTIPATION
     Dosage: 1 COFFEE SPOON PER DAY

REACTIONS (8)
  - COMA [None]
  - CONVULSION [None]
  - EXTRAPYRAMIDAL DISORDER [None]
  - HEAD INJURY [None]
  - MENINGITIS PNEUMOCOCCAL [None]
  - PROTHROMBIN TIME SHORTENED [None]
  - SUBDURAL HAEMATOMA [None]
  - VASCULITIS [None]
